FAERS Safety Report 14758907 (Version 3)
Quarter: 2018Q2

REPORT INFORMATION
  Report Type: Spontaneous
  Country: US (occurrence: US)
  Receive Date: 20180413
  Receipt Date: 20180417
  Transmission Date: 20180711
  Serious: Yes (Death, Hospitalization, Other)
  Sender: FDA-Public Use
  Company Number: US-PFIZER INC-2018147706

PATIENT
  Age: 74 Year
  Sex: Female

DRUGS (4)
  1. VITAMIN D [Concomitant]
     Active Substance: CHOLECALCIFEROL
     Dosage: 1000 MG, UNK
     Route: 065
  2. METHOTREXATE SODIUM. [Suspect]
     Active Substance: METHOTREXATE SODIUM
     Indication: ARTHRITIS
     Dosage: 20 MG, WEEKLY (8 TABLETS AT THE SAME TIME ONCE A WEEK)
     Route: 065
     Dates: start: 201708
  3. OXYGEN. [Suspect]
     Active Substance: OXYGEN
     Dosage: UNK
     Route: 065
  4. VITAMIN D [Concomitant]
     Active Substance: CHOLECALCIFEROL
     Dosage: 5000 MG, UNK
     Route: 065

REACTIONS (10)
  - Brain death [Fatal]
  - Dizziness [Unknown]
  - Haemoglobin decreased [Unknown]
  - Diarrhoea [Unknown]
  - Oxygen saturation increased [Unknown]
  - White blood cell count decreased [Unknown]
  - Fall [Unknown]
  - Constipation [Unknown]
  - Myocardial infarction [Fatal]
  - Haemorrhage [Unknown]

NARRATIVE: CASE EVENT DATE: 201802
